FAERS Safety Report 6197085-1 (Version None)
Quarter: 2009Q2

REPORT INFORMATION
  Report Type: 
  Country: None (occurrence: None)
  Receive Date: 20090520
  Receipt Date: 20090513
  Transmission Date: 20091009
  Serious: Yes (Death, Hospitalization, Other)
  Sender: FDA-Public Use
  Company Number: US-ABBOTT-09P-163-0566488-00

PATIENT
  Sex: Male

DRUGS (15)
  1. ZEMPLAR [Suspect]
     Indication: RENAL FAILURE CHRONIC
     Route: 042
     Dates: start: 20081218
  2. BENOFER [Concomitant]
     Indication: RENAL FAILURE
     Dosage: TAKEN WITH DIALYSIS
  3. EPOGEN [Concomitant]
     Indication: RENAL FAILURE
     Dosage: TAKEN WITH DIALYSIS
  4. ALLOPURINOL [Concomitant]
     Indication: DRUG USE FOR UNKNOWN INDICATION
  5. QUININE SULFATE [Concomitant]
     Indication: DRUG USE FOR UNKNOWN INDICATION
  6. ENALAPRIL [Concomitant]
     Indication: DRUG USE FOR UNKNOWN INDICATION
  7. POTCHRLIDE [Concomitant]
     Indication: DRUG USE FOR UNKNOWN INDICATION
  8. PREVACID [Concomitant]
     Indication: GASTROOESOPHAGEAL REFLUX DISEASE
     Dosage: UNKNOWN
  9. LASIX [Concomitant]
     Indication: DRUG USE FOR UNKNOWN INDICATION
     Dosage: UNKNOWN
  10. COREG [Concomitant]
     Indication: DRUG USE FOR UNKNOWN INDICATION
  11. KLONOPIN [Concomitant]
     Indication: DRUG USE FOR UNKNOWN INDICATION
     Dosage: UNKNOWN
  12. HUMULIN 70/30 [Concomitant]
     Indication: DIABETES MELLITUS
     Dosage: 75 UNITS IN THE AM, 25 UNITS IN THE PM 25 UNITS IN THE PM
     Dates: end: 20090309
  13. HUMULIN 70/30 [Concomitant]
     Route: 058
     Dates: start: 20090309
  14. PROCARDIA [Concomitant]
     Indication: BLOOD PRESSURE
     Dates: end: 20090309
  15. LABETALOL HCL [Concomitant]
     Indication: BLOOD PRESSURE
     Route: 048

REACTIONS (8)
  - CARDIAC ARREST [None]
  - DISORIENTATION [None]
  - DIZZINESS [None]
  - HYPERTENSIVE CRISIS [None]
  - HYPOGLYCAEMIA [None]
  - ISCHAEMIC CEREBRAL INFARCTION [None]
  - LETHARGY [None]
  - MENTAL STATUS CHANGES [None]
